FAERS Safety Report 24163588 (Version 1)
Quarter: 2024Q3

REPORT INFORMATION
  Report Type: Spontaneous
  Country: US (occurrence: US)
  Receive Date: 20240801
  Receipt Date: 20240801
  Transmission Date: 20241016
  Serious: No
  Sender: SEBELA
  Company Number: US-SEBELA IRELAND LIMITED-2023SEB00052

PATIENT
  Sex: Female

DRUGS (3)
  1. PEXEVA [Suspect]
     Active Substance: PAROXETINE MESYLATE
     Dosage: 40 MG
     Dates: end: 20230706
  2. PEXEVA [Suspect]
     Active Substance: PAROXETINE MESYLATE
     Dosage: 20 MG
     Dates: start: 20230707
  3. PEXEVA [Suspect]
     Active Substance: PAROXETINE MESYLATE
     Dosage: UNK

REACTIONS (3)
  - Illness [Unknown]
  - Product dose omission issue [Unknown]
  - Intentional product use issue [Unknown]

NARRATIVE: CASE EVENT DATE: 20230707
